FAERS Safety Report 21559961 (Version 1)
Quarter: 2022Q4

REPORT INFORMATION
  Report Type: Spontaneous
  Country: CN (occurrence: CN)
  Receive Date: 20221107
  Receipt Date: 20221107
  Transmission Date: 20230113
  Serious: Yes (Life-Threatening)
  Sender: FDA-Public Use
  Company Number: CN-002147023-NVSC2022CN249053

PATIENT
  Age: 69 Year
  Sex: Male
  Weight: 80 kg

DRUGS (3)
  1. OCTREOTIDE ACETATE [Suspect]
     Active Substance: OCTREOTIDE ACETATE
     Indication: Gastrointestinal haemorrhage
     Dosage: 0.1 G, TID
     Route: 058
     Dates: start: 20221015, end: 20221015
  2. OCTREOTIDE ACETATE [Suspect]
     Active Substance: OCTREOTIDE ACETATE
  3. OCTREOTIDE ACETATE [Suspect]
     Active Substance: OCTREOTIDE ACETATE

REACTIONS (5)
  - Anaphylactoid reaction [Recovered/Resolved]
  - Nausea [Recovering/Resolving]
  - Cold sweat [Recovering/Resolving]
  - Temperature intolerance [Recovering/Resolving]
  - Product use in unapproved indication [Unknown]

NARRATIVE: CASE EVENT DATE: 20221015
